FAERS Safety Report 5009114-9 (Version None)
Quarter: 2006Q2

REPORT INFORMATION
  Report Type: 
  Country: None (occurrence: None)
  Receive Date: 20060517
  Receipt Date: 20060505
  Transmission Date: 20061013
  Serious: Yes (Hospitalization, Other)
  Sender: FDA-Public Use
  Company Number: CHWYE603905MAY06

PATIENT
  Age: 82 Year
  Sex: Female

DRUGS (10)
  1. EFFEXOR [Suspect]
     Indication: AFFECTIVE DISORDER
     Dosage: 75 MG 1X PER 1 DAY ORAL
     Route: 048
  2. EFFEXOR [Suspect]
     Indication: DEPRESSION
     Dosage: 75 MG 1X PER 1 DAY ORAL
     Route: 048
  3. CARBAMAZEPINE [Suspect]
     Indication: TRIGEMINAL NEURALGIA
     Dosage: 200 MG 3X PER 1 DAY ORAL
     Route: 048
     Dates: start: 20010101
  4. METOCLOPRAMIDE (METOCLOPRAMIDE,, 0) [Suspect]
     Indication: NAUSEA
     Dosage: 10 MG 3X PER 1 DAY ORAL
     Route: 048
     Dates: start: 20051216, end: 20051228
  5. METOCLOPRAMIDE (METOCLOPRAMIDE,, 0) [Suspect]
     Indication: VOMITING
     Dosage: 10 MG 3X PER 1 DAY ORAL
     Route: 048
     Dates: start: 20051216, end: 20051228
  6. TRAMADOL (TRAMADOLOL, , 0) [Suspect]
     Indication: FACIAL PAIN
     Dosage: SEE IMAGE
     Route: 048
     Dates: start: 20051115, end: 20051215
  7. TRAMADOL (TRAMADOLOL, , 0) [Suspect]
     Indication: HERPES ZOSTER
     Dosage: SEE IMAGE
     Route: 048
     Dates: start: 20051115, end: 20051215
  8. TRAMADOL (TRAMADOLOL, , 0) [Suspect]
     Indication: FACIAL PAIN
     Dosage: SEE IMAGE
     Route: 048
     Dates: start: 20051216, end: 20051222
  9. TRAMADOL (TRAMADOLOL, , 0) [Suspect]
     Indication: HERPES ZOSTER
     Dosage: SEE IMAGE
     Route: 048
     Dates: start: 20051216, end: 20051222
  10. ACETAMINOPHEN [Concomitant]

REACTIONS (12)
  - ANXIETY [None]
  - APATHY [None]
  - ASTHENIA [None]
  - CONDITION AGGRAVATED [None]
  - DIARRHOEA [None]
  - DRUG INTERACTION [None]
  - HERPES ZOSTER [None]
  - HYPERREFLEXIA [None]
  - MENTAL STATUS CHANGES [None]
  - MYOCLONUS [None]
  - SEROTONIN SYNDROME [None]
  - TREMOR [None]
